FAERS Safety Report 17820164 (Version 1)
Quarter: 2020Q2

REPORT INFORMATION
  Report Type: Spontaneous
  Country: US (occurrence: US)
  Receive Date: 20200525
  Receipt Date: 20200525
  Transmission Date: 20200714
  Serious: No
  Sender: FDA-Public Use
  Company Number: US-ALVOGEN-2020-ALVOGEN-107738

PATIENT
  Age: 3 Year
  Sex: Female

DRUGS (1)
  1. OSELTAMIVIR [Suspect]
     Active Substance: OSELTAMIVIR
     Indication: INFLUENZA
     Dosage: 2 DOSES OF 5 ML
     Route: 048

REACTIONS (2)
  - Vomiting [Recovering/Resolving]
  - Malaise [Recovering/Resolving]
